FAERS Safety Report 11881904 (Version 1)
Quarter: 2015Q4

REPORT INFORMATION
  Report Type: Spontaneous
  Country: US (occurrence: None)
  Receive Date: 20151230
  Receipt Date: 20151230
  Transmission Date: 20160305
  Serious: Yes (Disabling)
  Sender: FDA-Public Use
  Company Number: None

PATIENT
  Age: 67 Year
  Sex: Male
  Weight: 72.58 kg

DRUGS (1)
  1. SIMVASTATIN 40MG / PROTOCAL #TAK-442-202 AM [Suspect]
     Active Substance: SIMVASTATIN
     Indication: ANTICOAGULANT THERAPY
     Dosage: QUANTITY: 30       FREQUENCY: 1 TIME  BEDTIME   ROUTE: MOUTH
     Route: 048
     Dates: start: 20091106

REACTIONS (2)
  - Type 2 diabetes mellitus [None]
  - Brain injury [None]

NARRATIVE: CASE EVENT DATE: 20090917
